FAERS Safety Report 4517853-9 (Version None)
Quarter: 2004Q4

REPORT INFORMATION
  Report Type: 
  Country: None (occurrence: None)
  Receive Date: 20041203
  Receipt Date: 20041110
  Transmission Date: 20050328
  Serious: Yes (Death)
  Sender: FDA-Public Use
  Company Number: NSADSS2003015655

PATIENT
  Sex: Female
  Weight: 108.86 kg

DRUGS (15)
  1. DURAGESIC [Suspect]
     Route: 062
  2. DURAGESIC [Suspect]
     Route: 062
  3. DURAGESIC [Suspect]
     Route: 062
  4. DURAGESIC [Suspect]
     Route: 062
  5. PERCOCET [Concomitant]
     Dates: start: 20020604
  6. PERCOCET [Concomitant]
     Indication: PAIN
     Dates: start: 20020604
  7. NEURONTIN [Concomitant]
  8. ZOLOFT [Concomitant]
  9. ZOFRAN [Concomitant]
     Indication: NAUSEA
  10. ZANAFLEX [Concomitant]
  11. CLONAZEPAM [Concomitant]
  12. PREVACID [Concomitant]
  13. PROMETHAZINE [Concomitant]
  14. HYDROMORPHONE [Concomitant]
  15. HYDROCODONE [Concomitant]

REACTIONS (18)
  - ACCIDENTAL DEATH [None]
  - ANALGESIC DRUG LEVEL ABOVE THERAPEUTIC [None]
  - APNOEA [None]
  - CARDIO-RESPIRATORY ARREST [None]
  - DIZZINESS [None]
  - DRY SKIN [None]
  - FATIGUE [None]
  - FOAMING AT MOUTH [None]
  - HYPERHIDROSIS [None]
  - INFLUENZA LIKE ILLNESS [None]
  - NARCOTIC INTOXICATION [None]
  - NAUSEA [None]
  - PERIPHERAL COLDNESS [None]
  - POLLAKIURIA [None]
  - PULSE ABSENT [None]
  - RESPIRATORY DEPRESSION [None]
  - SNORING [None]
  - VOMITING [None]
